FAERS Safety Report 5603827-3 (Version None)
Quarter: 2008Q1

REPORT INFORMATION
  Report Type: 
  Country: None (occurrence: None)
  Receive Date: 20080124
  Receipt Date: 20080124
  Transmission Date: 20080703
  Serious: Yes (Life-Threatening, Hospitalization)
  Sender: FDA-Public Use
  Company Number: None

PATIENT
  Age: 61 Year
  Sex: Male
  Weight: 79.3795 kg

DRUGS (2)
  1. CHANTIX [Suspect]
     Indication: SMOKING CESSATION THERAPY
     Dosage: 0.5MGS TWICE DAILY PO
     Route: 048
     Dates: start: 20070907, end: 20070915
  2. CHANTIX [Suspect]
     Indication: SMOKING CESSATION THERAPY
     Dosage: 0.5MGS TWICE DAILY PO
     Route: 048
     Dates: start: 20080110, end: 20080117

REACTIONS (5)
  - DEHYDRATION [None]
  - FOOD POISONING [None]
  - HAEMORRHAGE [None]
  - MUSCLE SPASMS [None]
  - RENAL FAILURE ACUTE [None]
